APPROVED DRUG PRODUCT: PITAVASTATIN CALCIUM
Active Ingredient: PITAVASTATIN CALCIUM
Strength: EQ 4MG BASE
Dosage Form/Route: TABLET;ORAL
Application: A205977 | Product #003 | TE Code: AB
Applicant: HETERO LABS LTD UNIT V
Approved: Apr 30, 2024 | RLD: No | RS: No | Type: RX